FAERS Safety Report 6584477-1 (Version None)
Quarter: 2010Q1

REPORT INFORMATION
  Report Type: 
  Country: None (occurrence: None)
  Receive Date: 20100213
  Receipt Date: 20100213
  Transmission Date: 20100710
  Serious: No
  Sender: FDA-Public Use
  Company Number: None

PATIENT
  Sex: Female
  Weight: 80.7403 kg

DRUGS (1)
  1. ENALAPRIL MALEATE [Suspect]
     Dosage: 20 MG QD PO
     Route: 048
     Dates: start: 20090811, end: 20100208

REACTIONS (1)
  - COUGH [None]
